FAERS Safety Report 4914380-1 (Version None)
Quarter: 2006Q1

REPORT INFORMATION
  Report Type: 
  Country: None (occurrence: None)
  Receive Date: 20060213
  Receipt Date: 20060202
  Transmission Date: 20060701
  Serious: Yes (Hospitalization)
  Sender: FDA-Public Use
  Company Number: 2006BI001994

PATIENT
  Age: 45 Year
  Sex: Female
  Weight: 72.5755 kg

DRUGS (4)
  1. AVONEX [Suspect]
     Indication: MULTIPLE SCLEROSIS
     Dosage: 30 UG; QW; IM
     Route: 030
     Dates: start: 19980101, end: 20030801
  2. AVONEX [Suspect]
     Indication: MULTIPLE SCLEROSIS
     Dosage: 30 UG; QW; IM
     Route: 030
     Dates: start: 20030801
  3. ALPRAZOLAM [Concomitant]
  4. ZOLOFT [Concomitant]

REACTIONS (12)
  - ANAEMIA [None]
  - ARTHROPATHY [None]
  - ASTHENIA [None]
  - CHILLS [None]
  - HERPES ZOSTER [None]
  - HYPOAESTHESIA [None]
  - HYPOVITAMINOSIS [None]
  - JOINT RECONSTRUCTION [None]
  - KNEE ARTHROPLASTY [None]
  - PAIN [None]
  - PAIN IN EXTREMITY [None]
  - PARAESTHESIA [None]
